FAERS Safety Report 7959415-7 (Version None)
Quarter: 2011Q4

REPORT INFORMATION
  Report Type: 
  Country: None (occurrence: None)
  Receive Date: 20111206
  Receipt Date: 20111129
  Transmission Date: 20120403
  Serious: Yes (Other)
  Sender: FDA-Public Use
  Company Number: CA-ASTRAZENECA-2011SE70715

PATIENT
  Age: 55 Year
  Sex: Female

DRUGS (12)
  1. HRT [Concomitant]
  2. PERCOCET [Concomitant]
  3. FLOVENT [Concomitant]
  4. SYMBICORT [Suspect]
     Dosage: 200 MCG TWO TIMES A DAY
     Route: 055
     Dates: start: 20110201, end: 20111120
  5. PREDNISONE TAB [Concomitant]
  6. ANTIBIOTICS [Concomitant]
  7. VENTOLIN [Concomitant]
  8. PPI [Concomitant]
  9. SPIRIVA [Concomitant]
  10. HOME OXYGEN [Concomitant]
  11. ATIVAN [Concomitant]
  12. SYMBICORT [Suspect]
     Dosage: 200 MCG TWO TIMES A DAY
     Route: 055
     Dates: start: 20111120

REACTIONS (6)
  - DRUG DOSE OMISSION [None]
  - ADVERSE EVENT [None]
  - DYSPNOEA [None]
  - OXYGEN CONSUMPTION INCREASED [None]
  - DIZZINESS [None]
  - BLOOD PRESSURE FLUCTUATION [None]
